FAERS Safety Report 9221108 (Version 5)
Quarter: 2014Q3

REPORT INFORMATION
  Report Type: Report from Study
  Country: JP (occurrence: JP)
  Receive Date: 20130409
  Receipt Date: 20140904
  Transmission Date: 20150326
  Serious: Yes (Death, Disabling, Other)
  Sender: FDA-Public Use
  Company Number: JP-CELGENEUS-087-21880-11021861

PATIENT
  Age: 79 Year
  Sex: Male

DRUGS (84)
  1. REVLIMID [Suspect]
     Active Substance: LENALIDOMIDE
     Dosage: 5 MILLIGRAM
     Route: 048
     Dates: start: 20120110, end: 20120130
  2. REVLIMID [Suspect]
     Active Substance: LENALIDOMIDE
     Dosage: 5 MILLIGRAM
     Route: 048
     Dates: start: 20130307, end: 20130422
  3. LENADEX [Suspect]
     Active Substance: DEXAMETHASONE ACETATE
     Indication: PLASMA CELL MYELOMA
     Dosage: 20 MILLIGRAM
     Route: 048
     Dates: start: 20120501, end: 20120504
  4. VELCADE [Concomitant]
     Active Substance: BORTEZOMIB
     Dosage: 1.8 MILLIGRAM
     Route: 041
     Dates: start: 20130312, end: 20130312
  5. FLUITRAN [Concomitant]
     Active Substance: TRICHLORMETHIAZIDE
     Indication: CARDIAC FAILURE
     Dosage: 1 MILLIGRAM
     Route: 048
     Dates: start: 20101214
  6. URIEF [Concomitant]
     Active Substance: SILODOSIN
     Dosage: 4 MILLIGRAM
     Route: 048
     Dates: end: 20130430
  7. DEXAMETHASONE. [Concomitant]
     Active Substance: DEXAMETHASONE
     Dosage: 13.2 MILLIGRAM
     Route: 041
     Dates: start: 20130219, end: 20130219
  8. REVLIMID [Suspect]
     Active Substance: LENALIDOMIDE
     Dosage: 5 MILLIGRAM
     Route: 048
     Dates: start: 20111122, end: 20111205
  9. DEXART [Concomitant]
     Active Substance: DEXAMETHASONE SODIUM PHOSPHATE
     Indication: PLASMA CELL MYELOMA
     Route: 041
     Dates: start: 20120628, end: 20120712
  10. DEXART [Concomitant]
     Active Substance: DEXAMETHASONE SODIUM PHOSPHATE
     Dosage: 16.5 MILLIGRAM
     Route: 041
     Dates: start: 20120813, end: 20120813
  11. VELCADE [Concomitant]
     Active Substance: BORTEZOMIB
     Indication: PLASMA CELL MYELOMA
     Route: 041
     Dates: start: 20120628, end: 20120712
  12. VELCADE [Concomitant]
     Active Substance: BORTEZOMIB
     Dosage: 1.8 MILLIGRAM
     Route: 041
     Dates: start: 20121009, end: 20121009
  13. VELCADE [Concomitant]
     Active Substance: BORTEZOMIB
     Dosage: 1.8 MILLIGRAM
     Route: 041
     Dates: start: 20130319, end: 20130319
  14. ITRIZOLE [Concomitant]
     Active Substance: ITRACONAZOLE
     Indication: SYSTEMIC CANDIDA
     Dosage: 20 MILLILITER
     Route: 048
     Dates: start: 20101116, end: 20130211
  15. MUCODYNE [Concomitant]
     Active Substance: CARBOCYSTEINE
     Indication: PROPHYLAXIS
     Dosage: 1500 MILLIGRAM
     Route: 048
     Dates: start: 20110308, end: 20110517
  16. SENNA [Concomitant]
     Active Substance: SENNA LEAF\SENNOSIDES\SENNOSIDES A AND B
     Indication: PROPHYLAXIS
     Dosage: .5 MILLIGRAM
     Route: 048
     Dates: start: 20110308
  17. DEXAMETHASONE. [Concomitant]
     Active Substance: DEXAMETHASONE
     Dosage: 13.2 MILLIGRAM
     Route: 041
     Dates: start: 20130212, end: 20130212
  18. REVLIMID [Suspect]
     Active Substance: LENALIDOMIDE
     Dosage: 15 MILLIGRAM
     Route: 048
     Dates: start: 20101214, end: 20110103
  19. REVLIMID [Suspect]
     Active Substance: LENALIDOMIDE
     Dosage: 10 MILLIGRAM
     Route: 048
     Dates: start: 20110531, end: 20110620
  20. REVLIMID [Suspect]
     Active Substance: LENALIDOMIDE
     Dosage: 10 MILLIGRAM
     Route: 048
     Dates: start: 20110823, end: 20110912
  21. REVLIMID [Suspect]
     Active Substance: LENALIDOMIDE
     Dosage: 10 MILLIGRAM
     Route: 048
     Dates: start: 20111018, end: 20111107
  22. REVLIMID [Suspect]
     Active Substance: LENALIDOMIDE
     Dosage: 5 MILLIGRAM
     Route: 048
     Dates: start: 20120626, end: 20120709
  23. REVLIMID [Suspect]
     Active Substance: LENALIDOMIDE
     Dosage: 5 MILLIGRAM
     Route: 048
     Dates: start: 20121022, end: 20121224
  24. DEXART [Concomitant]
     Active Substance: DEXAMETHASONE SODIUM PHOSPHATE
     Dosage: 16.5 MILLIGRAM
     Route: 041
     Dates: start: 20120906, end: 20120906
  25. LASIX [Concomitant]
     Active Substance: FUROSEMIDE
     Indication: CARDIAC FAILURE
     Dosage: 20 MILLIGRAM
     Route: 048
     Dates: start: 20101116, end: 20101128
  26. BAKTAR [Concomitant]
     Active Substance: SULFAMETHOXAZOLE\TRIMETHOPRIM
     Indication: PROPHYLAXIS
     Dosage: 1 TABLET
     Route: 048
     Dates: start: 20101116, end: 20130430
  27. BONALON [Concomitant]
     Active Substance: ALENDRONATE SODIUM
     Indication: PROPHYLAXIS
     Dosage: 35 MILLIGRAM
     Route: 048
     Dates: start: 20101116, end: 20130211
  28. METHYCOBAL [Concomitant]
     Active Substance: METHYLCOBALAMIN
     Indication: NEUROPATHY PERIPHERAL
     Dosage: 1500 MICROGRAM
     Route: 048
     Dates: start: 20101124, end: 20130211
  29. DEXAMETHASONE. [Concomitant]
     Active Substance: DEXAMETHASONE
     Dosage: 13.2 MILLIGRAM
     Route: 041
     Dates: start: 20121030, end: 20121030
  30. DEXAMETHASONE. [Concomitant]
     Active Substance: DEXAMETHASONE
     Dosage: 13.2 MILLIGRAM
     Route: 041
     Dates: start: 20130205, end: 20130205
  31. MAGMITT [Concomitant]
     Active Substance: MAGNESIUM OXIDE
     Indication: PROPHYLAXIS
     Dosage: 990 MILLIGRAM
     Route: 048
     Dates: end: 20130211
  32. GENINAX [Concomitant]
     Active Substance: GARENOXACIN MESYLATE
     Indication: PROPHYLAXIS
     Dosage: 200 MILLIGRAM
     Route: 048
     Dates: start: 20130117, end: 20130121
  33. REVLIMID [Suspect]
     Active Substance: LENALIDOMIDE
     Indication: PLASMA CELL MYELOMA
     Dosage: 10 MILLIGRAM
     Route: 048
     Dates: start: 20101116, end: 20101206
  34. REVLIMID [Suspect]
     Active Substance: LENALIDOMIDE
     Dosage: 15 MILLIGRAM
     Route: 048
     Dates: start: 20110308, end: 20110328
  35. REVLIMID [Suspect]
     Active Substance: LENALIDOMIDE
     Dosage: 10 MILLIGRAM
     Route: 048
     Dates: start: 20110920, end: 20111010
  36. VELCADE [Concomitant]
     Active Substance: BORTEZOMIB
     Dosage: 1.8 MILLIGRAM
     Route: 041
     Dates: start: 20120813, end: 20120813
  37. VELCADE [Concomitant]
     Active Substance: BORTEZOMIB
     Dosage: 1.8 MILLIGRAM
     Route: 041
     Dates: start: 20121030, end: 20121030
  38. VELCADE [Concomitant]
     Active Substance: BORTEZOMIB
     Dosage: 1.8 MILLIGRAM
     Route: 041
     Dates: start: 20130115, end: 20130115
  39. VELCADE [Concomitant]
     Active Substance: BORTEZOMIB
     Dosage: 1.8 MILLIGRAM
     Route: 041
     Dates: start: 20130219, end: 20130219
  40. DEXAMETHASONE. [Concomitant]
     Active Substance: DEXAMETHASONE
     Dosage: 13.2 MILLIGRAM
     Route: 041
     Dates: start: 20121129, end: 20121129
  41. DEXAMETHASONE. [Concomitant]
     Active Substance: DEXAMETHASONE
     Dosage: 16.5 MILLIGRAM
     Route: 041
     Dates: start: 20130105, end: 20130105
  42. LEVOFLOXACIN HEMIHYDRATE [Concomitant]
     Active Substance: LEVOFLOXACIN
     Indication: PROPHYLAXIS
     Dosage: 300 MILLIGRAM
     Route: 048
     Dates: start: 20130321, end: 20130327
  43. CALONAL [Concomitant]
     Active Substance: ACETAMINOPHEN
     Indication: PLASMA CELL MYELOMA
     Dosage: 600 MILLIGRAM
     Route: 048
     Dates: start: 20130222, end: 20130422
  44. TRAMAL [Concomitant]
     Active Substance: TRAMADOL
     Indication: PLASMA CELL MYELOMA
     Dosage: 75 MILLIGRAM
     Route: 048
     Dates: start: 20130226, end: 20130422
  45. REVLIMID [Suspect]
     Active Substance: LENALIDOMIDE
     Dosage: 15 MILLIGRAM
     Route: 048
     Dates: start: 20110503, end: 20110517
  46. REVLIMID [Suspect]
     Active Substance: LENALIDOMIDE
     Dosage: 5 MILLIGRAM
     Route: 048
     Dates: start: 20111213, end: 20120102
  47. PLETAAL [Concomitant]
     Active Substance: CILOSTAZOL
     Indication: PROPHYLAXIS
     Dosage: 100 MILLIGRAM
     Route: 048
     Dates: start: 20101116, end: 20130430
  48. PARIET [Concomitant]
     Active Substance: RABEPRAZOLE SODIUM
     Indication: PROPHYLAXIS
     Dosage: 10 MILLIGRAM
     Route: 048
     Dates: start: 20101116
  49. ALLELOCK [Concomitant]
     Active Substance: OLOPATADINE HYDROCHLORIDE
     Indication: PROPHYLAXIS
     Dosage: 10 MILLIGRAM
     Route: 048
     Dates: start: 20110308, end: 20120422
  50. KLARICID [Concomitant]
     Active Substance: CLARITHROMYCIN
     Indication: PROPHYLAXIS
     Dosage: 200 MILLIGRAM
     Route: 048
     Dates: start: 20110308, end: 20110517
  51. LANSOPRAZOLE. [Concomitant]
     Active Substance: LANSOPRAZOLE
     Indication: PROPHYLAXIS
     Dosage: 15 MILLIGRAM
     Route: 048
     Dates: end: 20130430
  52. REVLIMID [Suspect]
     Active Substance: LENALIDOMIDE
     Dosage: 5 MILLIGRAM
     Route: 048
     Dates: start: 20120207, end: 20120227
  53. REVLIMID [Suspect]
     Active Substance: LENALIDOMIDE
     Dosage: 5 MILLIGRAM
     Route: 048
     Dates: start: 20120403, end: 20120423
  54. REVLIMID [Suspect]
     Active Substance: LENALIDOMIDE
     Dosage: 5 MILLIGRAM
     Route: 048
     Dates: start: 20120529, end: 20120618
  55. VELCADE [Concomitant]
     Active Substance: BORTEZOMIB
     Dosage: 1.8 MILLIGRAM
     Route: 041
     Dates: start: 20121129, end: 20121129
  56. ZOMETA [Concomitant]
     Active Substance: ZOLEDRONIC ACID
     Dosage: 4 MILLIGRAM
     Route: 041
     Dates: start: 20130205, end: 20130205
  57. ZOMETA [Concomitant]
     Active Substance: ZOLEDRONIC ACID
     Dosage: 4 MILLIGRAM
     Route: 041
     Dates: start: 20130305, end: 20130305
  58. DEXAMETHASONE. [Concomitant]
     Active Substance: DEXAMETHASONE
     Dosage: 13.2 MILLIGRAM
     Route: 041
     Dates: start: 20121225, end: 20121225
  59. DEXAMETHASONE. [Concomitant]
     Active Substance: DEXAMETHASONE
     Dosage: 16.5 MILLIGRAM
     Route: 041
     Dates: start: 20130107, end: 20130107
  60. REVLIMID [Suspect]
     Active Substance: LENALIDOMIDE
     Dosage: 15 MILLIGRAM
     Route: 048
     Dates: start: 20110405, end: 20110425
  61. REVLIMID [Suspect]
     Active Substance: LENALIDOMIDE
     Dosage: 10 MILLIGRAM
     Route: 048
     Dates: start: 20110726, end: 20110815
  62. REVLIMID [Suspect]
     Active Substance: LENALIDOMIDE
     Dosage: 5 MILLIGRAM
     Route: 048
     Dates: start: 20120306, end: 20120326
  63. REVLIMID [Suspect]
     Active Substance: LENALIDOMIDE
     Dosage: 10 MILLIGRAM
     Route: 048
     Dates: start: 20120501, end: 20120521
  64. VELCADE [Concomitant]
     Active Substance: BORTEZOMIB
     Dosage: 1.8 MILLIGRAM
     Route: 041
     Dates: start: 20120906, end: 20120906
  65. VELCADE [Concomitant]
     Active Substance: BORTEZOMIB
     Dosage: 1.8 MILLIGRAM
     Route: 041
     Dates: start: 20130305, end: 20130305
  66. VELCADE [Concomitant]
     Active Substance: BORTEZOMIB
     Dosage: 1.8 MILLIGRAM
     Route: 041
     Dates: start: 20130409, end: 20130409
  67. VELCADE [Concomitant]
     Active Substance: BORTEZOMIB
     Dosage: 1.8 MILLIGRAM
     Route: 041
     Dates: start: 20130424, end: 20130424
  68. ZOMETA [Concomitant]
     Active Substance: ZOLEDRONIC ACID
     Dosage: 4 MILLIGRAM
     Route: 041
     Dates: start: 20130107, end: 20130107
  69. URIEF [Concomitant]
     Active Substance: SILODOSIN
     Indication: PRODUCT USED FOR UNKNOWN INDICATION
     Dosage: 8 MILLIGRAM
     Route: 048
     Dates: start: 20101214
  70. REVLIMID [Suspect]
     Active Substance: LENALIDOMIDE
     Dosage: 15 MILLIGRAM
     Route: 048
     Dates: start: 20110111, end: 20110131
  71. REVLIMID [Suspect]
     Active Substance: LENALIDOMIDE
     Dosage: 10 MILLIGRAM
     Route: 048
     Dates: start: 20110628, end: 20110718
  72. REVLIMID [Suspect]
     Active Substance: LENALIDOMIDE
     Dosage: 10 MILLIGRAM
     Route: 048
     Dates: start: 20111115, end: 20111121
  73. REVLIMID [Suspect]
     Active Substance: LENALIDOMIDE
     Dosage: 5 MILLIGRAM
     Route: 048
     Dates: start: 20130119, end: 20130211
  74. VELCADE [Concomitant]
     Active Substance: BORTEZOMIB
     Dosage: 1.8 MILLIGRAM
     Route: 041
     Dates: start: 20121225, end: 20121225
  75. VELCADE [Concomitant]
     Active Substance: BORTEZOMIB
     Dosage: 1.8 MILLIGRAM
     Route: 041
     Dates: start: 20130110, end: 20130110
  76. VELCADE [Concomitant]
     Active Substance: BORTEZOMIB
     Dosage: 1.8 MILLIGRAM
     Route: 041
     Dates: start: 20130212, end: 20130212
  77. VELCADE [Concomitant]
     Active Substance: BORTEZOMIB
     Dosage: 1.8 MILLIGRAM
     Route: 041
     Dates: start: 20130326, end: 20130326
  78. VELCADE [Concomitant]
     Active Substance: BORTEZOMIB
     Dosage: 1.8 MILLIGRAM
     Route: 041
     Dates: start: 20130416, end: 20130416
  79. ZOMETA [Concomitant]
     Active Substance: ZOLEDRONIC ACID
     Indication: PLASMA CELL MYELOMA
     Dosage: 4 MILLIGRAM
     Route: 041
     Dates: start: 20120705, end: 20120705
  80. DEXAMETHASONE. [Concomitant]
     Active Substance: DEXAMETHASONE
     Indication: PLASMA CELL MYELOMA
     Dosage: 13.2 MILLIGRAM
     Route: 041
     Dates: start: 20121009, end: 20121009
  81. DEXAMETHASONE. [Concomitant]
     Active Substance: DEXAMETHASONE
     Dosage: 13.2 MILLIGRAM
     Route: 041
     Dates: start: 20121023, end: 20121023
  82. DEXAMETHASONE. [Concomitant]
     Active Substance: DEXAMETHASONE
     Dosage: 6.6 MILLIGRAM
     Route: 041
     Dates: start: 20130115, end: 20130118
  83. DEXAMETHASONE. [Concomitant]
     Active Substance: DEXAMETHASONE
     Dosage: 13.2 MILLIGRAM
     Route: 041
     Dates: start: 20130305, end: 20130305
  84. DEXAMETHASONE. [Concomitant]
     Active Substance: DEXAMETHASONE
     Dosage: 13.2 MILLIGRAM
     Route: 041
     Dates: start: 20130312, end: 20130312

REACTIONS (28)
  - Anaemia [Not Recovered/Not Resolved]
  - Constipation [Recovered/Resolved]
  - Neutropenia [Recovered/Resolved]
  - Thrombocytopenia [Recovered/Resolved]
  - Hyperuricaemia [Recovering/Resolving]
  - Sinusitis [Recovered/Resolved]
  - Bronchitis [Recovered/Resolved]
  - Anaemia [Recovered/Resolved]
  - Thrombocytopenia [Recovered/Resolved]
  - Diarrhoea [Recovered/Resolved]
  - Mania [Recovering/Resolving]
  - Renal impairment [Not Recovered/Not Resolved]
  - Back pain [Not Recovered/Not Resolved]
  - Anaemia [Recovered/Resolved]
  - Constipation [Recovering/Resolving]
  - Bronchopneumonia [Fatal]
  - Hepatic function abnormal [Recovering/Resolving]
  - Renal impairment [Recovered/Resolved]
  - Thrombocytopenia [Recovered/Resolved]
  - Bronchopneumonia [Recovered/Resolved]
  - Delirium [Recovered/Resolved]
  - Dementia [Not Recovered/Not Resolved]
  - Anaemia [Recovered/Resolved]
  - Platelet count decreased [Recovered/Resolved]
  - Renal failure acute [Fatal]
  - Venous thrombosis limb [Not Recovered/Not Resolved]
  - Dysphagia [Not Recovered/Not Resolved]
  - Platelet count decreased [Not Recovered/Not Resolved]

NARRATIVE: CASE EVENT DATE: 20101124
